FAERS Safety Report 13114531 (Version 1)
Quarter: 2017Q1

REPORT INFORMATION
  Report Type: Spontaneous
  Country: CA (occurrence: CA)
  Receive Date: 20170113
  Receipt Date: 20170113
  Transmission Date: 20170428
  Serious: Yes (Other)
  Sender: FDA-Public Use
  Company Number: CA-GALDERMA-CA17000084

PATIENT
  Sex: Female

DRUGS (1)
  1. TACTUO [Suspect]
     Active Substance: ADAPALENE
     Indication: ACNE
     Route: 061
     Dates: start: 20161121, end: 20161124

REACTIONS (4)
  - Erythema [Unknown]
  - Skin hyperpigmentation [Unknown]
  - Skin burning sensation [Unknown]
  - Skin necrosis [Unknown]

NARRATIVE: CASE EVENT DATE: 20161124
